FAERS Safety Report 15437673 (Version 2)
Quarter: 2018Q4

REPORT INFORMATION
  Report Type: Spontaneous
  Country: US (occurrence: US)
  Receive Date: 20180927
  Receipt Date: 20181011
  Transmission Date: 20190204
  Serious: Yes (Other)
  Sender: FDA-Public Use
  Company Number: US-GILEAD-2018-0365145

PATIENT
  Sex: Male
  Weight: 88.44 kg

DRUGS (7)
  1. LISINOPRIL. [Concomitant]
     Active Substance: LISINOPRIL
  2. LOPRESSOR [Concomitant]
     Active Substance: METOPROLOL TARTRATE
  3. NEURONTIN [Concomitant]
     Active Substance: GABAPENTIN
  4. NORVASC [Concomitant]
     Active Substance: AMLODIPINE BESYLATE
  5. DEPAKOTE [Concomitant]
     Active Substance: DIVALPROEX SODIUM
  6. EPCLUSA [Suspect]
     Active Substance: SOFOSBUVIR\VELPATASVIR
     Indication: CHRONIC HEPATITIS C
     Dosage: UNK
     Route: 048
     Dates: start: 20180328, end: 20180619
  7. FEMERON [Concomitant]

REACTIONS (2)
  - Hepatitis C [Unknown]
  - Drug ineffective [Unknown]
